FAERS Safety Report 5623575-3 (Version None)
Quarter: 2008Q1

REPORT INFORMATION
  Report Type: 
  Country: None (occurrence: None)
  Receive Date: 20080212
  Receipt Date: 20080131
  Transmission Date: 20080703
  Serious: Yes (Death)
  Sender: FDA-Public Use
  Company Number: IE-ELI_LILLY_AND_COMPANY-IE200801006893

PATIENT
  Age: 36 Year
  Sex: Male

DRUGS (4)
  1. CYMBALTA [Suspect]
     Dosage: 60 MG, DAILY (1/D)
     Route: 048
  2. SEROQUEL [Concomitant]
     Dosage: 450 MG, DAILY (1/D)
     Route: 048
  3. ATIVAN [Concomitant]
     Dosage: 1 MG, DAILY (1/D)
  4. VIAGRA [Concomitant]
     Dosage: 50 MG, DAILY (1/D)

REACTIONS (1)
  - DEATH [None]
